FAERS Safety Report 4358136-X (Version None)
Quarter: 2004Q2

REPORT INFORMATION
  Report Type: 
  Country: None (occurrence: None)
  Receive Date: 20040513
  Receipt Date: 20040513
  Transmission Date: 20050107
  Serious: Yes (Hospitalization)
  Sender: FDA-Public Use
  Company Number: None

PATIENT
  Sex: Male
  Weight: 99 kg

DRUGS (9)
  1. TAXOTERE [Suspect]
     Indication: PROSTATE CANCER METASTATIC
     Dosage: 36MG/M2 Q WEEKLY INTRAVENOUS
     Route: 042
     Dates: start: 20040506, end: 20040506
  2. DEXAMETHASONE [Suspect]
     Indication: PROSTATE CANCER METASTATIC
     Dosage: 0.75 MG B.I.D. ORAL
     Route: 048
     Dates: start: 20040506, end: 20040511
  3. HYDROCHLOROTHIAZIDE [Concomitant]
  4. TIAZAC [Concomitant]
  5. ZOCOR [Concomitant]
  6. VIT B6 [Concomitant]
  7. MULTI-VITAMIN [Concomitant]
  8. SSS TONIC-IRON [Concomitant]
  9. LUPRON [Concomitant]

REACTIONS (1)
  - BLOOD CREATININE INCREASED [None]
